FAERS Safety Report 6720457-0 (Version None)
Quarter: 2010Q2

REPORT INFORMATION
  Report Type: 
  Country: None (occurrence: None)
  Receive Date: 20100511
  Receipt Date: 20100311
  Transmission Date: 20101027
  Serious: No
  Sender: FDA-Public Use
  Company Number: US-ALLERGAN-1003273US

PATIENT
  Sex: Female

DRUGS (1)
  1. ACUVAIL [Suspect]
     Indication: PAIN
     Dosage: UNK
     Dates: start: 20100301

REACTIONS (1)
  - EYE IRRITATION [None]
